FAERS Safety Report 10528019 (Version 1)
Quarter: 2014Q4

REPORT INFORMATION
  Report Type: Spontaneous
  Country: US (occurrence: US)
  Receive Date: 20141020
  Receipt Date: 20141020
  Transmission Date: 20150528
  Serious: Yes (Other)
  Sender: FDA-Public Use
  Company Number: US-ELI_LILLY_AND_COMPANY-US201410005274

PATIENT
  Age: 55 Year
  Sex: Female

DRUGS (6)
  1. PROZAC [Suspect]
     Active Substance: FLUOXETINE HYDROCHLORIDE
     Dosage: 20 MG, QD
     Route: 065
  2. HALOPERIDOL. [Concomitant]
     Active Substance: HALOPERIDOL
     Dosage: 2 MG, QD
     Route: 065
  3. LITHIUM [Concomitant]
     Active Substance: LITHIUM CARBONATE
     Dosage: 600 MG, QD
     Route: 065
  4. HALOPERIDOL. [Concomitant]
     Active Substance: HALOPERIDOL
     Dosage: 8 MG, QD
     Route: 065
  5. BENZTROPINE [Suspect]
     Active Substance: BENZTROPINE
     Dosage: 1 MG, QD
  6. HALOPERIDOL. [Concomitant]
     Active Substance: HALOPERIDOL
     Dosage: 0.5 MG, QD

REACTIONS (5)
  - Delirium [Recovered/Resolved]
  - Apraxia [Unknown]
  - Dementia [Recovered/Resolved]
  - Ataxia [Recovered/Resolved]
  - Appetite disorder [Unknown]
